FAERS Safety Report 9113331 (Version 1)
Quarter: 2013Q1

REPORT INFORMATION
  Report Type: Spontaneous
  Country: US (occurrence: US)
  Receive Date: 20130211
  Receipt Date: 20130211
  Transmission Date: 20140127
  Serious: No
  Sender: FDA-Public Use
  Company Number: US-BAYER-2013-012617

PATIENT
  Age: 45 Year
  Sex: Male
  Weight: 99.77 kg

DRUGS (1)
  1. BETASERON [Suspect]
     Indication: MULTIPLE SCLEROSIS
     Dosage: 0.25 MG, QOD
     Route: 058

REACTIONS (3)
  - Abnormal sensation in eye [Unknown]
  - Memory impairment [Unknown]
  - Joint stiffness [Unknown]
